FAERS Safety Report 9007551 (Version 1)
Quarter: 2013Q1

REPORT INFORMATION
  Report Type: Spontaneous
  Country: US (occurrence: US)
  Receive Date: 20130111
  Receipt Date: 20130111
  Transmission Date: 20140127
  Serious: Yes (Life-Threatening, Hospitalization, Other)
  Sender: FDA-Public Use
  Company Number: US-009507513-0901USA02201

PATIENT
  Age: 47 Year
  Sex: Female
  Weight: 65.32 kg

DRUGS (2)
  1. MONTELUKAST SODIUM [Suspect]
     Indication: ASTHMA
     Dosage: 10 MG, QD
     Route: 048
     Dates: start: 20061222, end: 20080723
  2. MONTELUKAST SODIUM [Suspect]
     Indication: MULTIPLE ALLERGIES

REACTIONS (5)
  - Feeling abnormal [Unknown]
  - Incorrect dose administered [Unknown]
  - Suicidal behaviour [Unknown]
  - Suicidal ideation [Unknown]
  - Suicide attempt [Unknown]
